FAERS Safety Report 13019075 (Version 4)
Quarter: 2019Q3

REPORT INFORMATION
  Report Type: Report from Study
  Country: BR (occurrence: BR)
  Receive Date: 20161212
  Receipt Date: 20190919
  Transmission Date: 20191004
  Serious: Yes (Hospitalization, Other)
  Sender: FDA-Public Use
  Company Number: PHHY2016BR168716

PATIENT
  Sex: Female
  Weight: 55 kg

DRUGS (6)
  1. MIFLONIDE BREEZHALER [Suspect]
     Active Substance: BUDESONIDE
     Indication: PRODUCT USED FOR UNKNOWN INDICATION
     Route: 065
  2. FORASEQ [Suspect]
     Active Substance: BUDESONIDE\FORMOTEROL FUMARATE
     Indication: ASTHMA
     Dosage: 2 DF (FORMOTEROL FUMARATE: 12 UG, BUDESONIDE: UNKNOWN), BID (2 IN THE MORNING, 2 IN NIGHT)
     Route: 055
  3. PREDNISONE. [Concomitant]
     Active Substance: PREDNISONE
     Indication: ASTHMATIC CRISIS
     Dosage: PRN
     Route: 065
  4. FORASEQ [Suspect]
     Active Substance: BUDESONIDE\FORMOTEROL FUMARATE
     Dosage: 3 DF, QD
     Route: 065
  5. XOLAIR [Suspect]
     Active Substance: OMALIZUMAB
     Indication: ASTHMA
     Dosage: 1 DF (150 MG), QMO
     Route: 058
  6. SEEBRI BREEZHALER [Suspect]
     Active Substance: GLYCOPYRROLATE
     Indication: PRODUCT USED FOR UNKNOWN INDICATION
     Route: 065

REACTIONS (10)
  - Blood pressure systolic increased [Recovering/Resolving]
  - Asthmatic crisis [Unknown]
  - Fatigue [Unknown]
  - Dyspnoea [Unknown]
  - Asthma [Recovering/Resolving]
  - Malaise [Unknown]
  - Drug ineffective [Unknown]
  - Infection [Unknown]
  - Pneumonia [Unknown]
  - Pyrexia [Unknown]
